APPROVED DRUG PRODUCT: CHLOROTHIAZIDE SODIUM
Active Ingredient: CHLOROTHIAZIDE SODIUM
Strength: EQ 500MG BASE/VIAL
Dosage Form/Route: INJECTABLE;INJECTION
Application: A202561 | Product #001 | TE Code: AP
Applicant: AMERICAN REGENT INC
Approved: Apr 22, 2013 | RLD: No | RS: No | Type: RX